FAERS Safety Report 4690752-8 (Version None)
Quarter: 2005Q2

REPORT INFORMATION
  Report Type: 
  Country: None (occurrence: None)
  Receive Date: 20050615
  Receipt Date: 20050608
  Transmission Date: 20051028
  Serious: Yes (Hospitalization)
  Sender: FDA-Public Use
  Company Number: US-BRISTOL-MYERS SQUIBB COMPANY-12998480

PATIENT
  Age: 73 Year
  Sex: Male

DRUGS (5)
  1. CARBOPLATIN [Suspect]
     Indication: NON-SMALL CELL LUNG CANCER
     Route: 042
     Dates: start: 20050526, end: 20050526
  2. PACLITAXEL [Suspect]
     Indication: NON-SMALL CELL LUNG CANCER
     Route: 042
     Dates: start: 20050526, end: 20050526
  3. CARDIZEM CD [Concomitant]
     Dates: start: 20020101
  4. COUMADIN [Concomitant]
     Dates: start: 19960101
  5. ZIAC [Concomitant]
     Dates: start: 20000101

REACTIONS (1)
  - PNEUMONIA [None]
